FAERS Safety Report 7118232-0 (Version None)
Quarter: 2010Q4

REPORT INFORMATION
  Report Type: 
  Country: None (occurrence: None)
  Receive Date: 20101123
  Receipt Date: 20101019
  Transmission Date: 20110411
  Serious: Yes (Other)
  Sender: FDA-Public Use
  Company Number: US-BAYER-201032157NA

PATIENT
  Age: 55 Year
  Sex: Female

DRUGS (2)
  1. BETASERON [Suspect]
     Indication: MULTIPLE SCLEROSIS
     Dosage: TOTAL DAILY DOSE: 2 MIU
     Route: 058
     Dates: start: 20100827, end: 20100829
  2. DECADRON [Suspect]
     Indication: OEDEMA MOUTH

REACTIONS (5)
  - DYSPNOEA [None]
  - HALLUCINATION [None]
  - OEDEMA MOUTH [None]
  - PSYCHOTIC DISORDER [None]
  - SWOLLEN TONGUE [None]
